FAERS Safety Report 26042450 (Version 1)
Quarter: 2025Q4

REPORT INFORMATION
  Report Type: Spontaneous
  Country: EU (occurrence: EU)
  Receive Date: 20251113
  Receipt Date: 20251113
  Transmission Date: 20260118
  Serious: Yes (Hospitalization, Other)
  Sender: PFIZER
  Company Number: None

PATIENT
  Age: 39 Year
  Sex: Female
  Weight: 59 kg

DRUGS (5)
  1. DOCETAXEL [Suspect]
     Active Substance: DOCETAXEL
     Indication: Gastric cancer
     Dosage: 73MG/CYCLE
     Route: 042
     Dates: start: 20251024, end: 20251024
  2. OXALIPLATIN [Suspect]
     Active Substance: OXALIPLATIN
     Indication: Gastric cancer
     Dosage: 120MG/CYCLE
     Route: 042
     Dates: start: 20251024, end: 20251024
  3. METHYLPREDNISOLONE [Concomitant]
     Active Substance: METHYLPREDNISOLONE
     Dosage: 50MG/CYCLE
     Route: 042
     Dates: start: 20251024, end: 20251024
  4. EMEND [Concomitant]
     Active Substance: APREPITANT
     Dosage: UNK
     Route: 042
     Dates: start: 20251024, end: 20251024
  5. ONDANSETRON [Concomitant]
     Active Substance: ONDANSETRON
     Dosage: UNK
     Route: 042
     Dates: start: 20251024, end: 20251024

REACTIONS (1)
  - Pancreatitis acute [Recovering/Resolving]

NARRATIVE: CASE EVENT DATE: 20251024
